FAERS Safety Report 22070633 (Version 1)
Quarter: 2023Q1

REPORT INFORMATION
  Report Type: Spontaneous
  Country: DE (occurrence: DE)
  Receive Date: 20230307
  Receipt Date: 20230307
  Transmission Date: 20230417
  Serious: Yes (Other)
  Sender: FDA-Public Use
  Company Number: DE-002147023-NVSC2023DE049622

PATIENT

DRUGS (4)
  1. VINCRISTINE [Suspect]
     Active Substance: VINCRISTINE
     Indication: Hodgkin^s disease stage II
     Dosage: 1.5 MG/M2, CAPPED AT 2 MG ON DAYS 1,8 AND 15 OF 28-DAY CYCLE, 2 CYCLES
     Route: 042
  2. ETOPOSIDE [Suspect]
     Active Substance: ETOPOSIDE
     Indication: Hodgkin^s disease stage II
     Dosage: 125 MG/M2, CYCLIC (DAYS 1-5), 2 CYCLES
     Route: 042
  3. PREDNISONE [Suspect]
     Active Substance: PREDNISONE
     Indication: Hodgkin^s disease stage II
     Dosage: 60 MG/M2, CYCLIC, DAYS (1-15), 2 CYCLES
     Route: 048
  4. DOXORUBICIN [Suspect]
     Active Substance: DOXORUBICIN
     Indication: Hodgkin^s disease stage II
     Dosage: 40 MG/M2, CYCLIC, (ON DAYS 1 AND 15), 2 CYCLES
     Route: 042

REACTIONS (3)
  - Papillary thyroid cancer [Unknown]
  - Second primary malignancy [Unknown]
  - Therapeutic product effect incomplete [Unknown]
